FAERS Safety Report 5597474-X (Version None)
Quarter: 2008Q1

REPORT INFORMATION
  Report Type: 
  Country: None (occurrence: None)
  Receive Date: 20080117
  Receipt Date: 20080114
  Transmission Date: 20080703
  Serious: No
  Sender: FDA-Public Use
  Company Number: ZYD-AE-08-006

PATIENT
  Sex: Female

DRUGS (1)
  1. RIBAVIRIN [Suspect]
     Indication: HEPATITIS C VIRUS
     Dosage: PO
     Route: 048
     Dates: start: 20071201

REACTIONS (4)
  - ASTHENIA [None]
  - FATIGUE [None]
  - FLATULENCE [None]
  - HAEMOGLOBIN DECREASED [None]
